FAERS Safety Report 18963204 (Version 3)
Quarter: 2021Q2

REPORT INFORMATION
  Report Type: Report from Study
  Country: US (occurrence: US)
  Receive Date: 20210303
  Receipt Date: 20210409
  Transmission Date: 20210717
  Serious: Yes (Other)
  Sender: FDA-Public Use
  Company Number: US-BAYER-2021-024382

PATIENT
  Age: 65 Year
  Sex: Female

DRUGS (1)
  1. STIVARGA [Suspect]
     Active Substance: REGORAFENIB
     Indication: COLORECTAL CANCER
     Dosage: DAILY DOSE 160 MG FOR 3 WEEKS ON 1 WEEK OFF
     Route: 048
     Dates: start: 20210107

REACTIONS (8)
  - Stomatitis [Recovering/Resolving]
  - Haematochezia [Recovered/Resolved]
  - Abdominal pain [Not Recovered/Not Resolved]
  - Fatigue [Not Recovered/Not Resolved]
  - Blood count abnormal [Not Recovered/Not Resolved]
  - Dysphonia [Not Recovered/Not Resolved]
  - Neuropathy peripheral [Not Recovered/Not Resolved]
  - Abdominal distension [Not Recovered/Not Resolved]

NARRATIVE: CASE EVENT DATE: 2021
